FAERS Safety Report 8441069 (Version 5)
Quarter: 2013Q3

REPORT INFORMATION
  Report Type: Report from Study
  Country: IT (occurrence: IT)
  Receive Date: 20120305
  Receipt Date: 20130722
  Transmission Date: 20140515
  Serious: Yes (Hospitalization)
  Sender: FDA-Public Use
  Company Number: IT-BAXTER-2012BH006204

PATIENT
  Age: 50 Year
  Sex: Male
  Weight: 59 kg

DRUGS (24)
  1. ENDOXAN BAXTER [Suspect]
     Indication: NON-HODGKIN^S LYMPHOMA
     Route: 065
  2. RITUXIMAB [Suspect]
     Indication: NON-HODGKIN^S LYMPHOMA
     Route: 042
     Dates: start: 20110718
  3. RITUXIMAB [Suspect]
     Route: 065
     Dates: start: 20110801
  4. PREDNISOLONE [Suspect]
     Indication: NON-HODGKIN^S LYMPHOMA
     Route: 065
  5. DOXORUBICIN [Suspect]
     Indication: NON-HODGKIN^S LYMPHOMA
     Route: 065
  6. VINCRISTINE [Suspect]
     Indication: NON-HODGKIN^S LYMPHOMA
     Route: 065
  7. LEVOTHYROXINE SODIUM [Concomitant]
     Indication: THYROIDITIS CHRONIC
     Route: 065
     Dates: start: 20121022
  8. LEVOTHYROXINE SODIUM [Concomitant]
     Indication: HYPOTHYROIDISM
  9. OMEPRAZOLE [Concomitant]
     Indication: PROPHYLAXIS AGAINST GASTROINTESTINAL ULCER
     Route: 065
  10. FUROSEMIDE [Concomitant]
     Indication: ASCITES
     Route: 065
  11. OCTREOTIDE [Concomitant]
     Indication: ASCITES
     Route: 065
  12. CHLORPHENIRAMINE MALEATE [Concomitant]
     Indication: RASH PRURITIC
     Route: 065
  13. GENTAMICIN SULFATE [Concomitant]
     Indication: NAIL DYSTROPHY
     Route: 065
  14. PENTAMIDINE AEROSOL [Concomitant]
     Indication: PROPHYLAXIS
     Route: 065
     Dates: start: 20120206
  15. RIFAXIMIN [Concomitant]
     Indication: PROPHYLAXIS
     Route: 065
     Dates: start: 20121022, end: 20121120
  16. KADIUR [Concomitant]
     Indication: PROPHYLAXIS
     Route: 065
     Dates: start: 20121022
  17. PANCREATIN [Concomitant]
     Indication: PROPHYLAXIS
     Route: 065
     Dates: start: 20121022
  18. FENTANYL CITRATE [Concomitant]
     Indication: CANCER PAIN
     Route: 065
  19. SODIUM BICARBONATE [Concomitant]
     Indication: HYPERKALAEMIA
     Route: 065
     Dates: start: 20110715
  20. ZOVIRAX [Concomitant]
     Indication: PROPHYLAXIS
     Route: 065
     Dates: start: 20110801
  21. SULFAMETHOXAZOLE/TRIMETHOPRIM [Concomitant]
     Indication: PROPHYLAXIS
     Route: 065
     Dates: start: 20110801
  22. ITRACONAZOLE [Concomitant]
     Indication: PROPHYLAXIS
     Route: 065
     Dates: start: 20110913
  23. CALCIDON [Concomitant]
     Indication: PROPHYLAXIS
     Route: 065
     Dates: start: 20111022
  24. HALIBORANGE [Concomitant]
     Indication: PROPHYLAXIS
     Route: 065
     Dates: start: 20121022

REACTIONS (5)
  - Pulmonary embolism [Recovered/Resolved]
  - Deep vein thrombosis [Unknown]
  - Condition aggravated [Recovered/Resolved]
  - Rash [Recovered/Resolved]
  - Ascites [Recovered/Resolved]
